FAERS Safety Report 7492360-2 (Version None)
Quarter: 2011Q2

REPORT INFORMATION
  Report Type: 
  Country: None (occurrence: None)
  Receive Date: 20110519
  Receipt Date: 20110511
  Transmission Date: 20111010
  Serious: Yes (Death, Other)
  Sender: FDA-Public Use
  Company Number: VE-GENZYME-CLOF-1001543

PATIENT
  Sex: Male
  Weight: 156 kg

DRUGS (9)
  1. CLOLAR [Suspect]
     Indication: ACUTE LYMPHOCYTIC LEUKAEMIA
     Dosage: 40 MG/M2, UNK
     Route: 042
     Dates: start: 20110117, end: 20110121
  2. CLOLAR [Suspect]
     Dosage: 40 MG/M2, UNK
     Route: 042
     Dates: start: 20110228, end: 20110304
  3. ETOPOSIDE [Suspect]
     Indication: ACUTE LYMPHOCYTIC LEUKAEMIA
     Dosage: 100 MG/KG, QD
     Route: 065
     Dates: start: 20110117, end: 20110121
  4. CYCLOPHOSPHAMIDE [Suspect]
     Dosage: 400 MG/KG, QD
     Route: 065
     Dates: start: 20110228, end: 20110304
  5. CIPROFLOXACIN [Concomitant]
     Indication: PROPHYLAXIS
     Dosage: 30 UNK, BID, BEFORE EACH CYCLE
  6. ETOPOSIDE [Suspect]
     Dosage: 100 MG/KG, QD
     Route: 065
     Dates: start: 20110228, end: 20110304
  7. CYCLOPHOSPHAMIDE [Suspect]
     Indication: ACUTE LYMPHOCYTIC LEUKAEMIA
     Dosage: 400 MG/KG, QD
     Route: 065
     Dates: start: 20110117, end: 20110121
  8. FLUCONAZOLE [Concomitant]
     Indication: PROPHYLAXIS
     Dosage: 5 MG/KG, QD
  9. ACYCLOVIR [Concomitant]
     Indication: PROPHYLAXIS
     Dosage: 30 MG/KG, QID, BEFORE EACH CYCLE

REACTIONS (8)
  - PAIN [None]
  - UROSEPSIS [None]
  - FEBRILE NEUTROPENIA [None]
  - MULTI-ORGAN FAILURE [None]
  - HEPATOTOXICITY [None]
  - URINARY TRACT INFECTION [None]
  - CELLULITIS [None]
  - NEUROLOGICAL DECOMPENSATION [None]
